FAERS Safety Report 18596769 (Version 1)
Quarter: 2020Q4

REPORT INFORMATION
  Report Type: Report from Study
  Country: JP (occurrence: JP)
  Receive Date: 20201209
  Receipt Date: 20201209
  Transmission Date: 20210114
  Serious: Yes (Other)
  Sender: FDA-Public Use
  Company Number: JP-ALLERGAN-2041033US

PATIENT
  Sex: Female

DRUGS (2)
  1. BOTULINUM TOXIN TYPE A - GENERAL (9060X) [Suspect]
     Active Substance: BOTULINUM TOXIN TYPE A
     Dosage: 2.5 UNITS, SINGLE
     Route: 030
     Dates: start: 20190128, end: 20190128
  2. BOTULINUM TOXIN TYPE A - GENERAL (9060X) [Suspect]
     Active Substance: BOTULINUM TOXIN TYPE A
     Indication: SPASMODIC DYSPHONIA
     Dosage: 1.8 UNITS, SINGLE
     Route: 030
     Dates: start: 20190513, end: 20190513

REACTIONS (3)
  - Choking [Recovered/Resolved]
  - Dysphonia [Recovered/Resolved]
  - Rhinorrhoea [Recovered/Resolved]

NARRATIVE: CASE EVENT DATE: 20190130
